FAERS Safety Report 16562030 (Version 1)
Quarter: 2019Q3

REPORT INFORMATION
  Report Type: Spontaneous
  Country: BE (occurrence: BE)
  Receive Date: 20190711
  Receipt Date: 20190711
  Transmission Date: 20191004
  Serious: Yes (Other)
  Sender: FDA-Public Use
  Company Number: BE-BAYER-2019-125195

PATIENT
  Age: 59 Year
  Sex: Male

DRUGS (6)
  1. REGORAFENIB. [Suspect]
     Active Substance: REGORAFENIB
     Indication: COLON CANCER
     Dosage: 120 MG DAILY
     Dates: start: 2016, end: 201606
  2. REGORAFENIB. [Suspect]
     Active Substance: REGORAFENIB
     Indication: COLON CANCER
     Dosage: 120 MG/D, 3 WEEKS ON, 1 WEEK OFF
     Dates: start: 201804
  3. REGORAFENIB. [Suspect]
     Active Substance: REGORAFENIB
     Indication: COLON CANCER
     Dosage: DAILY DOSE 160 MG, 21 DAYS ON, 7 DAYS OFF
     Dates: start: 201603, end: 201606
  4. REGORAFENIB. [Suspect]
     Active Substance: REGORAFENIB
     Indication: COLON CANCER
     Dosage: UNK
     Dates: start: 2016, end: 201609
  5. REGORAFENIB. [Suspect]
     Active Substance: REGORAFENIB
     Indication: COLON CANCER
     Dosage: 120 MG DAILY 3 WEEKS ON, 1 WEEK OFF
     Dates: start: 201701, end: 2017
  6. REGORAFENIB. [Suspect]
     Active Substance: REGORAFENIB
     Indication: COLON CANCER
     Dosage: PERSONALISED TREATMENT SCHEDULE OF 10 DAYS ON/7 DAYS OFF - IN ORDER TO INCREASE PATIENT TOLERABILITY
     Dates: start: 2017, end: 201708

REACTIONS (8)
  - Hepatic lesion [Recovering/Resolving]
  - Palmar-plantar erythrodysaesthesia syndrome [None]
  - Jaundice cholestatic [Recovering/Resolving]
  - Urethritis [None]
  - Inappropriate schedule of product administration [None]
  - Lymphadenopathy [None]
  - Carcinoembryonic antigen increased [None]
  - Palmar-plantar erythrodysaesthesia syndrome [None]

NARRATIVE: CASE EVENT DATE: 2016
